FAERS Safety Report 4442314-5 (Version None)
Quarter: 2004Q3

REPORT INFORMATION
  Report Type: 
  Country: None (occurrence: None)
  Receive Date: 20040903
  Receipt Date: 20040806
  Transmission Date: 20050211
  Serious: Yes (Other)
  Sender: FDA-Public Use
  Company Number: 2004UW14669

PATIENT
  Age: 86 Year
  Sex: Female
  Weight: 65.318 kg

DRUGS (2)
  1. CRESTOR [Suspect]
     Indication: BLOOD CHOLESTEROL INCREASED
     Dosage: 10 MG QD PO
     Route: 048
  2. ATENOLOL [Concomitant]

REACTIONS (3)
  - BURSITIS [None]
  - MUSCULAR WEAKNESS [None]
  - MYALGIA [None]
